FAERS Safety Report 5337751-0 (Version None)
Quarter: 2007Q2

REPORT INFORMATION
  Report Type: 
  Country: None (occurrence: None)
  Receive Date: 20070308
  Receipt Date: 20061130
  Transmission Date: 20071010
  Serious: No
  Sender: FDA-Public Use
  Company Number: 2006-BP-14077BP

PATIENT
  Age: 81 Year
  Sex: Female

DRUGS (3)
  1. SPIRIVA [Suspect]
     Indication: CHRONIC OBSTRUCTIVE PULMONARY DISEASE
     Dosage: (18 MCG), IH
     Route: 055
     Dates: start: 20060918
  2. FLUTICASONE PROPIONATE [Concomitant]
  3. XOPENEX HFA (LEVOSALBUTAMOL) [Concomitant]

REACTIONS (1)
  - TREMOR [None]
